FAERS Safety Report 11606984 (Version 1)
Quarter: 2015Q4

REPORT INFORMATION
  Report Type: Spontaneous
  Country: RU (occurrence: RU)
  Receive Date: 20151007
  Receipt Date: 20151007
  Transmission Date: 20160304
  Serious: Yes (Other)
  Sender: FDA-Public Use
  Company Number: RU-ABBVIE-15P-251-1476667-00

PATIENT

DRUGS (4)
  1. PHYSIOTENS [Suspect]
     Active Substance: MOXONIDINE
     Indication: HYPERTENSION
     Route: 048
  2. PHYSIOTENS [Suspect]
     Active Substance: MOXONIDINE
     Indication: METABOLIC DISORDER
     Route: 065
  3. TRICOR [Suspect]
     Active Substance: FENOFIBRATE
     Indication: PROPHYLAXIS
     Route: 048
  4. TRICOR [Suspect]
     Active Substance: FENOFIBRATE
     Indication: RENAL DISORDER
     Route: 065

REACTIONS (5)
  - Hypertension [Unknown]
  - Renal pain [Unknown]
  - Face oedema [Unknown]
  - Erythema [Unknown]
  - Drug ineffective [Unknown]
